FAERS Safety Report 23422977 (Version 1)
Quarter: 2024Q1

REPORT INFORMATION
  Report Type: Spontaneous
  Country: US (occurrence: None)
  Receive Date: 20240119
  Receipt Date: 20240119
  Transmission Date: 20240410
  Serious: Yes (Other)
  Sender: FDA-Public Use
  Company Number: None

PATIENT
  Sex: Female

DRUGS (13)
  1. BOTOX [Suspect]
     Active Substance: ONABOTULINUMTOXINA
     Indication: Migraine
     Dosage: OTHER QUANTITY : 100 UNIT;?OTHER FREQUENCY : EVERY THREE MONTHS;?
     Route: 058
     Dates: start: 20230427
  2. BOTOX [Suspect]
     Active Substance: ONABOTULINUMTOXINA
     Dosage: OTHER QUANTITY : 155 UNITS;?OTHER FREQUENCY : EVERY THREE MONTHS;?
     Route: 048
  3. AZELASTINE [Concomitant]
  4. BENADRYL [Concomitant]
  5. ESTRADOL [Concomitant]
  6. HERCEPTIN [Concomitant]
     Active Substance: TRASTUZUMAB
  7. HYDROCHLOROTHIAZIDE [Concomitant]
     Active Substance: HYDROCHLOROTHIAZIDE
  8. HYDROXYZINE HYDROCHLORIDE [Concomitant]
     Active Substance: HYDROXYZINE HYDROCHLORIDE
  9. METOPROLOL TARTRATE [Concomitant]
     Active Substance: METOPROLOL TARTRATE
  10. OMEPRAZOLE [Concomitant]
     Active Substance: OMEPRAZOLE
  11. PROMETHAZINE [Concomitant]
     Active Substance: PROMETHAZINE HYDROCHLORIDE
  12. RESTASIS [Concomitant]
  13. UBRELVY [Concomitant]
     Active Substance: UBROGEPANT

REACTIONS (1)
  - Breast cancer [None]
